FAERS Safety Report 19955394 (Version 2)
Quarter: 2022Q4

REPORT INFORMATION
  Report Type: Other
  Country: AU (occurrence: None)
  Receive Date: 20211014
  Receipt Date: 20221107
  Transmission Date: 20230112
  Serious: Yes (Hospitalization)
  Sender: FDA-Public Use
  Company Number: AU-ROCHE-2928298

PATIENT
  Age: 40 Year
  Sex: Female

DRUGS (2)
  1. OBINUTUZUMAB [Suspect]
     Active Substance: OBINUTUZUMAB
     Indication: Follicular lymphoma
     Route: 065
     Dates: start: 2020
  2. BENDAMUSTINE [Suspect]
     Active Substance: BENDAMUSTINE
     Indication: Follicular lymphoma
     Route: 065
     Dates: start: 2020

REACTIONS (6)
  - Enterovirus infection [Recovered/Resolved]
  - Seizure [Recovered/Resolved]
  - Pancytopenia [Recovered/Resolved]
  - Confusional state [Recovered/Resolved]
  - Generalised oedema [Recovered/Resolved]
  - Liver function test abnormal [Recovered/Resolved]
